FAERS Safety Report 5419343-8 (Version None)
Quarter: 2007Q3

REPORT INFORMATION
  Report Type: 
  Country: None (occurrence: None)
  Receive Date: 20070815
  Receipt Date: 20070730
  Transmission Date: 20080115
  Serious: Yes (Hospitalization)
  Sender: FDA-Public Use
  Company Number: DSA_30321_2007

PATIENT
  Sex: Male

DRUGS (4)
  1. DILTIAZEM [Suspect]
     Indication: BLOOD PRESSURE
     Dosage: (180 MG QD ORAL)
     Route: 048
  2. ATENOLOL [Concomitant]
  3. MODURETIC 5-50 [Concomitant]
  4. HYDRALAZINE HCL [Concomitant]

REACTIONS (4)
  - DRUG INEFFECTIVE [None]
  - JOINT SWELLING [None]
  - PULMONARY OEDEMA [None]
  - RASH [None]
